FAERS Safety Report 6522040-9 (Version None)
Quarter: 2009Q4

REPORT INFORMATION
  Report Type: 
  Country: None (occurrence: None)
  Receive Date: 20091230
  Receipt Date: 20091217
  Transmission Date: 20100525
  Serious: Yes (Other)
  Sender: FDA-Public Use
  Company Number: JP-PFIZER INC-2009310746

PATIENT
  Sex: Male

DRUGS (3)
  1. VFEND [Suspect]
     Dosage: UNK
     Route: 048
     Dates: start: 20091204, end: 20091204
  2. ADONA [Concomitant]
  3. TRANSAMIN [Concomitant]

REACTIONS (3)
  - LOSS OF CONSCIOUSNESS [None]
  - PHOTOPHOBIA [None]
  - VISUAL IMPAIRMENT [None]
